FAERS Safety Report 14753302 (Version 1)
Quarter: 2018Q2

REPORT INFORMATION
  Report Type: Spontaneous
  Country: US (occurrence: US)
  Receive Date: 20180412
  Receipt Date: 20180412
  Transmission Date: 20180711
  Serious: No
  Sender: FDA-Public Use
  Company Number: US-ALLERGAN-1801738US

PATIENT
  Age: 62 Year
  Sex: Female
  Weight: 55.33 kg

DRUGS (3)
  1. FEMRING [Suspect]
     Active Substance: ESTRADIOL ACETATE
     Indication: MENOPAUSE
     Dosage: 1 APPLIED EVERY 90 DAYS
     Route: 067
     Dates: start: 2003
  2. HYDROCODONE [Concomitant]
     Active Substance: HYDROCODONE
     Indication: SPINAL OSTEOARTHRITIS
     Dosage: UNK, BID
     Route: 048
     Dates: start: 2017
  3. LYRICA [Concomitant]
     Active Substance: PREGABALIN
     Indication: RESTLESS LEGS SYNDROME
     Dosage: UNK UNK, PRN
     Route: 048

REACTIONS (10)
  - Insomnia [Unknown]
  - Chills [Not Recovered/Not Resolved]
  - Influenza [Recovered/Resolved]
  - Feeling abnormal [Unknown]
  - Malaise [Unknown]
  - Tremor [Recovered/Resolved]
  - Hot flush [Unknown]
  - Product packaging quantity issue [Unknown]
  - Drug dose omission [Unknown]
  - Drug ineffective [Unknown]
